FAERS Safety Report 7207734-4 (Version None)
Quarter: 2011Q1

REPORT INFORMATION
  Report Type: 
  Country: None (occurrence: None)
  Receive Date: 20110103
  Receipt Date: 20101227
  Transmission Date: 20110831
  Serious: Yes (Other)
  Sender: FDA-Public Use
  Company Number: JP-JNJFOC-20101204054

PATIENT
  Age: 49 Year
  Sex: Male

DRUGS (10)
  1. NAUZELIN [Concomitant]
     Route: 048
  2. RISPERIDONE [Suspect]
     Indication: AGITATION
     Route: 048
  3. PANTOSIN [Concomitant]
     Route: 048
  4. TAKEPRON [Concomitant]
     Route: 048
  5. CALCIUM LACTATE [Concomitant]
     Route: 048
  6. ZADITEN [Concomitant]
     Route: 048
  7. GASMOTIN [Concomitant]
     Route: 048
  8. PHENOBARBITAL [Concomitant]
     Route: 048
  9. CARBAMAZEPINE [Concomitant]
     Route: 048
  10. SELBEX [Concomitant]
     Route: 048

REACTIONS (4)
  - CONVULSION [None]
  - ILEUS [None]
  - GASTRIC HAEMORRHAGE [None]
  - ENTEROCOLITIS VIRAL [None]
